FAERS Safety Report 18726294 (Version 2)
Quarter: 2021Q1

REPORT INFORMATION
  Report Type: Report from Study
  Country: ZA (occurrence: ZA)
  Receive Date: 20210111
  Receipt Date: 20210329
  Transmission Date: 20210419
  Serious: No
  Sender: FDA-Public Use
  Company Number: ZA-SA-2021SA006048

PATIENT
  Age: 78 Year
  Sex: Male

DRUGS (12)
  1. PANTOCID [MONALAZONE DISODIUM] [Concomitant]
     Dates: start: 20201111
  2. INDOBLOK [Concomitant]
     Active Substance: PROPRANOLOL HYDROCHLORIDE
     Dosage: UNK
  3. PANTOCID [PANTOPRAZOLE SODIUM SESQUIHYDRATE] [Concomitant]
     Active Substance: PANTOPRAZOLE SODIUM
     Dosage: UNK
     Dates: start: 20201111
  4. GLUCOPHAGE XR [Concomitant]
     Active Substance: METFORMIN HYDROCHLORIDE
     Dosage: 1000 MG, QD (AFTER BREAKFAST)
     Dates: start: 20201109
  5. PREDNISONE. [Concomitant]
     Active Substance: PREDNISONE
     Dosage: UNK
     Dates: start: 20201111
  6. NIATAB 500 [Concomitant]
     Dosage: 50 MG, QD (AFTER SUPPER)
  7. VENTEZE [SALBUTAMOL] [Concomitant]
     Dosage: 200 DOSE
     Dates: start: 20201111
  8. FOXAIR [Concomitant]
     Active Substance: FLUTICASONE PROPIONATE\SALMETEROL XINAFOATE
     Dosage: 60 DOSE 50/100
     Dates: start: 20201111
  9. NUELIN SA [Concomitant]
     Active Substance: THEOPHYLLINE ANHYDROUS
     Dates: start: 20201111
  10. VILDAGLIPTIN [Concomitant]
     Active Substance: VILDAGLIPTIN
     Dosage: 50 MG, QD (AFTER BREAKFAST)
     Dates: start: 20201109
  11. INSULIN GLARGINE [Suspect]
     Active Substance: INSULIN GLARGINE
     Indication: TYPE 2 DIABETES MELLITUS
     Dosage: 6 IU, HS
     Route: 058
     Dates: start: 20201109
  12. ZOPIVANE [Concomitant]
     Active Substance: ZOPICLONE
     Dosage: UNK
     Dates: start: 20201111

REACTIONS (3)
  - Diarrhoea [Recovered/Resolved]
  - Blood glucose fluctuation [Not Recovered/Not Resolved]
  - Blood glucose increased [Unknown]
